FAERS Safety Report 5136501-0 (Version None)
Quarter: 2006Q4

REPORT INFORMATION
  Report Type: 
  Country: None (occurrence: None)
  Receive Date: 20061020
  Receipt Date: 20061010
  Transmission Date: 20070319
  Serious: Yes (Other)
  Sender: FDA-Public Use
  Company Number: 2005BH002471

PATIENT
  Age: 57 Year
  Sex: Male

DRUGS (1)
  1. DOBUTAMINE HCL [Suspect]
     Indication: STRESS ECHOCARDIOGRAM

REACTIONS (2)
  - TORSADE DE POINTES [None]
  - VENTRICULAR EXTRASYSTOLES [None]
